FAERS Safety Report 14578165 (Version 2)
Quarter: 2018Q1

REPORT INFORMATION
  Report Type: Report from Study
  Country: AU (occurrence: AU)
  Receive Date: 20180227
  Receipt Date: 20180313
  Transmission Date: 20180509
  Serious: Yes (Other)
  Sender: FDA-Public Use
  Company Number: AU-MYLANLABS-2018M1013522

PATIENT
  Age: 20 Year
  Sex: Male

DRUGS (5)
  1. CLOZARIL [Suspect]
     Active Substance: CLOZAPINE
     Dosage: 250 MG, PM
     Route: 048
     Dates: start: 20170420
  2. VITAMIN E                          /00110501/ [Concomitant]
     Active Substance: TOCOPHEROL
     Indication: PRODUCT USED FOR UNKNOWN INDICATION
     Dosage: 1500 IU, UNK
  3. PANTOPRAZOLE [Concomitant]
     Active Substance: PANTOPRAZOLE
     Indication: PRODUCT USED FOR UNKNOWN INDICATION
     Dosage: 20 MG, UNK
  4. CLOZARIL [Suspect]
     Active Substance: CLOZAPINE
     Indication: SCHIZOPHRENIA
     Dosage: 50 MG, AM
     Route: 048
     Dates: start: 20170420
  5. METFORMIN [Concomitant]
     Active Substance: METFORMIN HYDROCHLORIDE
     Indication: PRODUCT USED FOR UNKNOWN INDICATION
     Dosage: 2 G, UNK

REACTIONS (8)
  - C-reactive protein increased [Unknown]
  - Mean cell volume decreased [Recovered/Resolved]
  - Myocarditis [Unknown]
  - Chest pain [Unknown]
  - Mean cell haemoglobin decreased [Recovered/Resolved]
  - Body mass index increased [Recovering/Resolving]
  - Electrocardiogram T wave inversion [Unknown]
  - Echocardiogram abnormal [Recovering/Resolving]

NARRATIVE: CASE EVENT DATE: 20170726
